FAERS Safety Report 6854885-X (Version None)
Quarter: 2010Q3

REPORT INFORMATION
  Report Type: 
  Country: None (occurrence: None)
  Receive Date: 20100717
  Receipt Date: 20080220
  Transmission Date: 20110219
  Serious: No
  Sender: FDA-Public Use
  Company Number: US-PFIZER INC-2007105975

PATIENT
  Sex: Female
  Weight: 86.363 kg

DRUGS (8)
  1. CHANTIX [Suspect]
     Indication: SMOKING CESSATION THERAPY
     Route: 048
     Dates: start: 20071209, end: 20071210
  2. CARBAMAZEPINE [Concomitant]
  3. TRIHEXYPHENIDYL HCL [Concomitant]
  4. LEXAPRO [Concomitant]
  5. RANITIDINE [Concomitant]
  6. ETODOLAC [Concomitant]
  7. LORATADINE [Concomitant]
  8. ABILIFY [Concomitant]

REACTIONS (3)
  - DYSPNOEA [None]
  - FATIGUE [None]
  - HEADACHE [None]
